FAERS Safety Report 7319067-6 (Version None)
Quarter: 2011Q1

REPORT INFORMATION
  Report Type: 
  Country: None (occurrence: None)
  Receive Date: 20110223
  Receipt Date: 20110223
  Transmission Date: 20110831
  Serious: No
  Sender: FDA-Public Use
  Company Number: None

PATIENT
  Age: 69 Year
  Sex: Male
  Weight: 94.8018 kg

DRUGS (1)
  1. IBUPROFEN [Suspect]
     Indication: ARTHRITIS
     Dosage: 400 MGM TWICE DAILY PO
     Route: 048
     Dates: start: 20110103, end: 20110202

REACTIONS (3)
  - ARTHRALGIA [None]
  - DRUG INEFFECTIVE [None]
  - PRODUCT SUBSTITUTION ISSUE [None]
